FAERS Safety Report 25402029 (Version 1)
Quarter: 2025Q2

REPORT INFORMATION
  Report Type: Spontaneous
  Country: US (occurrence: None)
  Receive Date: 20250605
  Receipt Date: 20250605
  Transmission Date: 20250717
  Serious: Yes (Other)
  Sender: FDA-CTU
  Company Number: None

PATIENT
  Age: 47 Year
  Sex: Female
  Weight: 75.15 kg

DRUGS (4)
  1. SOLU-MEDROL [Suspect]
     Active Substance: METHYLPREDNISOLONE SODIUM SUCCINATE
     Indication: Bronchitis
     Route: 058
     Dates: start: 20250604, end: 20250604
  2. FLOVENT [Concomitant]
     Active Substance: FLUTICASONE PROPIONATE
  3. ALBUTEROL [Concomitant]
     Active Substance: ALBUTEROL
  4. IBUPROFEN [Concomitant]
     Active Substance: IBUPROFEN

REACTIONS (5)
  - Pain in extremity [None]
  - Muscle spasms [None]
  - Back pain [None]
  - Muscle spasms [None]
  - Headache [None]

NARRATIVE: CASE EVENT DATE: 20250605
